FAERS Safety Report 21041997 (Version 3)
Quarter: 2022Q4

REPORT INFORMATION
  Report Type: Report from Study
  Country: US (occurrence: US)
  Receive Date: 20220705
  Receipt Date: 20221202
  Transmission Date: 20230113
  Serious: Yes (Other)
  Sender: FDA-Public Use
  Company Number: US-NOVARTISPH-NVSC2022US151791

PATIENT
  Age: 53 Year
  Sex: Female

DRUGS (1)
  1. ENTRESTO [Suspect]
     Active Substance: SACUBITRIL\VALSARTAN
     Indication: Cardiac failure
     Dosage: UNK UNK, BID
     Route: 048
     Dates: start: 20220618

REACTIONS (7)
  - Diabetes mellitus [Unknown]
  - Atrial fibrillation [Recovered/Resolved]
  - Stress [Unknown]
  - COVID-19 [Recovering/Resolving]
  - Heart rate increased [Unknown]
  - Exostosis [Unknown]
  - Decreased activity [Unknown]

NARRATIVE: CASE EVENT DATE: 20220618
